FAERS Safety Report 5246208-7 (Version None)
Quarter: 2007Q1

REPORT INFORMATION
  Report Type: 
  Country: None (occurrence: None)
  Receive Date: 20070220
  Receipt Date: 20070205
  Transmission Date: 20070707
  Serious: Yes (Death)
  Sender: FDA-Public Use
  Company Number: 2005JP001110

PATIENT
  Age: 45 Year
  Sex: Female

DRUGS (4)
  1. PROGRAF [Suspect]
     Indication: STEM CELL TRANSPLANT
  2. THIOTEPA [Concomitant]
  3. CYCLOPHOSPHAMIDE [Concomitant]
  4. ACYCLOVIR [Concomitant]

REACTIONS (9)
  - BRAIN DEATH [None]
  - CARDIO-RESPIRATORY ARREST [None]
  - COMA [None]
  - CONVULSION [None]
  - ENCEPHALITIS HERPES [None]
  - GRAFT VERSUS HOST DISEASE [None]
  - LEUKOENCEPHALOPATHY [None]
  - NEPHROPATHY TOXIC [None]
  - RASH [None]
